FAERS Safety Report 22311406 (Version 1)
Quarter: 2023Q2

REPORT INFORMATION
  Report Type: Spontaneous
  Country: US (occurrence: US)
  Receive Date: 20230511
  Receipt Date: 20230511
  Transmission Date: 20230722
  Serious: No
  Sender: FDA-Public Use
  Company Number: US-GE HEALTHCARE-2023CSU001392

PATIENT
  Age: 52 Year
  Sex: Male

DRUGS (4)
  1. OMNIPAQUE [Suspect]
     Active Substance: IOHEXOL
     Indication: Computerised tomogram abdomen
     Dosage: 15 ML, SINGLE
     Route: 048
     Dates: start: 20230228, end: 20230228
  2. OMNIPAQUE [Suspect]
     Active Substance: IOHEXOL
     Indication: Hernia
  3. OMNIPAQUE [Suspect]
     Active Substance: IOHEXOL
     Indication: Computerised tomogram abdomen
     Dosage: 150 ML, SINGLE
     Route: 042
     Dates: start: 20230228, end: 20230228
  4. OMNIPAQUE [Suspect]
     Active Substance: IOHEXOL
     Indication: Hernia

REACTIONS (1)
  - Urticaria [Recovering/Resolving]

NARRATIVE: CASE EVENT DATE: 20230228
